FAERS Safety Report 9220236 (Version 2)
Quarter: 2013Q2

REPORT INFORMATION
  Report Type: Report from Study
  Country: GB (occurrence: GB)
  Receive Date: 20130409
  Receipt Date: 20130620
  Transmission Date: 20140414
  Serious: Yes (Death, Life-Threatening, Hospitalization)
  Sender: FDA-Public Use
  Company Number: GB-ASTRAZENECA-2013SE22557

PATIENT
  Age: 22606 Day
  Sex: Male
  Weight: 71.2 kg

DRUGS (12)
  1. VANDETANIB [Suspect]
     Indication: PANCREATIC CARCINOMA
     Route: 048
     Dates: start: 20130307, end: 20130321
  2. GEMCITABINE [Suspect]
     Indication: PANCREATIC CARCINOMA
     Route: 042
     Dates: start: 20130307
  3. FLUOXETINE [Concomitant]
     Indication: DEPRESSION
     Route: 048
     Dates: start: 20110615, end: 20130323
  4. OMEPRAZOLE [Concomitant]
     Indication: GASTRIC PH INCREASED
     Route: 048
     Dates: start: 20030615
  5. ORAMORPH [Concomitant]
     Indication: TUMOUR PAIN
     Route: 048
     Dates: start: 20130115
  6. PARACETAMOL [Concomitant]
     Indication: TUMOUR PAIN
     Route: 048
     Dates: start: 20130115
  7. DEXAMETHASONE [Concomitant]
     Indication: DECREASED APPETITE
     Route: 048
     Dates: start: 20130115, end: 20130311
  8. DEXAMETHASONE [Concomitant]
     Indication: DECREASED APPETITE
     Route: 048
     Dates: start: 20130312
  9. METALON [Concomitant]
     Indication: NAUSEA
     Route: 048
     Dates: start: 20130315
  10. ZOMORPH [Concomitant]
     Indication: TUMOUR PAIN
     Route: 048
     Dates: start: 20130115, end: 20130314
  11. ZOMORPH [Concomitant]
     Indication: TUMOUR PAIN
     Route: 048
     Dates: start: 20130315
  12. MAXOLON [Concomitant]
     Indication: TUMOUR PAIN
     Route: 048
     Dates: start: 20130312

REACTIONS (2)
  - Bronchitis [Fatal]
  - Pulmonary embolism [Fatal]
